FAERS Safety Report 6231854-4 (Version None)
Quarter: 2009Q2

REPORT INFORMATION
  Report Type: 
  Country: None (occurrence: None)
  Receive Date: 20090612
  Receipt Date: 20090612
  Transmission Date: 20091009
  Serious: Yes (Hospitalization)
  Sender: FDA-Public Use
  Company Number: None

PATIENT
  Age: 75 Year
  Sex: Male
  Weight: 80 kg

DRUGS (11)
  1. LOVENOX [Suspect]
     Dosage: 65 MG 80 MG BID SQ
     Route: 058
     Dates: start: 20090223, end: 20090226
  2. WARFARIN SODIUM [Suspect]
     Dosage: 2.5 MG QD PO
     Route: 048
     Dates: start: 20090224, end: 20090302
  3. MULTIVITAMIN [Concomitant]
  4. ALTACE [Concomitant]
  5. COREG [Concomitant]
  6. COUMADIN [Concomitant]
  7. AMIODARINE [Concomitant]
  8. XANAX [Concomitant]
  9. PRAVACHOL [Concomitant]
  10. TERAZOZIN [Concomitant]
  11. AMBIEN [Concomitant]

REACTIONS (1)
  - HAEMATOMA [None]
